FAERS Safety Report 8933281 (Version 1)
Quarter: 2012Q4

REPORT INFORMATION
  Report Type: 
  Country: CL (occurrence: CL)
  Receive Date: 20121129
  Receipt Date: 20121129
  Transmission Date: 20130627
  Serious: Yes (Other)
  Sender: FDA-Public Use
  Company Number: PHHY2012CL109366

PATIENT
  Age: 69 Year

DRUGS (1)
  1. EXELON PATCH [Suspect]
     Indication: PARKINSON^S DISEASE
     Dosage: 4.6 mg, daily
     Route: 062

REACTIONS (2)
  - Renal failure [Unknown]
  - Hallucination [Unknown]
